FAERS Safety Report 5675434-8 (Version None)
Quarter: 2008Q2

REPORT INFORMATION
  Report Type: 
  Country: None (occurrence: None)
  Receive Date: 20080307
  Receipt Date: 20070403
  Transmission Date: 20081010
  Serious: Yes (Other)
  Sender: FDA-Public Use
  Company Number: US200701006259

PATIENT
  Age: 56 Year
  Sex: Male
  Weight: 83 kg

DRUGS (4)
  1. GEMZAR [Suspect]
     Indication: NON-SMALL CELL LUNG CANCER
     Dosage: 1000 MG/M2, OTHER, INTRAVENOUS
     Route: 042
     Dates: start: 20060301, end: 20061201
  2. NAVELBINE [Concomitant]
  3. TAXOL [Concomitant]
  4. DECADRON /CAN/ (DEXAMETHASONE) [Concomitant]

REACTIONS (1)
  - PULMONARY FIBROSIS [None]
